FAERS Safety Report 11225746 (Version 5)
Quarter: 2016Q1

REPORT INFORMATION
  Report Type: Spontaneous
  Country: FR (occurrence: FR)
  Receive Date: 20150629
  Receipt Date: 20160128
  Transmission Date: 20160525
  Serious: Yes (Congenital Anomaly, Other)
  Sender: FDA-Public Use
  Company Number: FR-MERCK-1506FRA011547

PATIENT
  Age: 0 Day
  Sex: Male
  Weight: 2.44 kg

DRUGS (4)
  1. TRANDATE [Suspect]
     Active Substance: LABETALOL HYDROCHLORIDE
     Route: 064
  2. ISENTRESS [Suspect]
     Active Substance: RALTEGRAVIR POTASSIUM
     Route: 064
  3. PREZISTA [Suspect]
     Active Substance: DARUNAVIR ETHANOLATE
     Route: 064
  4. NORVIR [Suspect]
     Active Substance: RITONAVIR
     Route: 064

REACTIONS (9)
  - Tracheo-oesophageal fistula [Unknown]
  - Aqueductal stenosis [Unknown]
  - Synostosis [Unknown]
  - Premature baby [Unknown]
  - Foetal exposure during pregnancy [Recovered/Resolved]
  - Hemivertebra [Unknown]
  - Spinal disorder [Unknown]
  - Microtia [Unknown]
  - Multiple congenital abnormalities [Unknown]

NARRATIVE: CASE EVENT DATE: 20150501
